FAERS Safety Report 5862782-1 (Version None)
Quarter: 2008Q3

REPORT INFORMATION
  Report Type: 
  Country: None (occurrence: None)
  Receive Date: 20080828
  Receipt Date: 20080822
  Transmission Date: 20090109
  Serious: Yes (Death, Other)
  Sender: FDA-Public Use
  Company Number: US-AMGEN-US182439

PATIENT
  Sex: Male

DRUGS (1)
  1. ETANERCEPT [Suspect]
     Indication: HEPATITIS ALCOHOLIC
     Dates: start: 20060601, end: 20060606

REACTIONS (4)
  - BACTERIAL INFECTION [None]
  - DEATH [None]
  - ESCHERICHIA INFECTION [None]
  - PNEUMONIA [None]
